FAERS Safety Report 7227941-4 (Version None)
Quarter: 2011Q1

REPORT INFORMATION
  Report Type: 
  Country: None (occurrence: None)
  Receive Date: 20110114
  Receipt Date: 20110110
  Transmission Date: 20110831
  Serious: Yes (Other)
  Sender: FDA-Public Use
  Company Number: US-AMGEN-USASP2011001606

PATIENT

DRUGS (2)
  1. LIPITOR [Concomitant]
     Indication: DYSLIPIDAEMIA
  2. ENBREL [Suspect]
     Indication: RHEUMATOID ARTHRITIS
     Dosage: 50 MG, QWK
     Dates: start: 20100401

REACTIONS (2)
  - LUNG NEOPLASM MALIGNANT [None]
  - BRAIN NEOPLASM MALIGNANT [None]
